FAERS Safety Report 11167104 (Version 2)
Quarter: 2015Q2

REPORT INFORMATION
  Report Type: Report from Study
  Country: JP (occurrence: JP)
  Receive Date: 20150605
  Receipt Date: 20150616
  Transmission Date: 20150821
  Serious: Yes (Death)
  Sender: FDA-Public Use
  Company Number: JP-ROCHE-1589376

PATIENT
  Age: 74 Year
  Sex: Male

DRUGS (1)
  1. RANIBIZUMAB [Suspect]
     Active Substance: RANIBIZUMAB
     Indication: DIABETIC RETINAL OEDEMA
     Dosage: LAST DOSE OF INTRAVITREAL INJECTION WAS ON 07/MAY/2015.
     Route: 050
     Dates: start: 20150421

REACTIONS (1)
  - Cardiac disorder [Fatal]
